FAERS Safety Report 9096639 (Version 1)
Quarter: 2013Q1

REPORT INFORMATION
  Report Type: Spontaneous
  Country: KR (occurrence: KR)
  Receive Date: 20130211
  Receipt Date: 20130211
  Transmission Date: 20140127
  Serious: Yes (Other)
  Sender: FDA-Public Use
  Company Number: PHHY2013KR010219

PATIENT
  Age: 74 Year
  Sex: Female

DRUGS (2)
  1. GLEEVEC [Suspect]
     Indication: CHRONIC MYELOID LEUKAEMIA
     Dosage: 400 MG, PER DAY
  2. GLEEVEC [Suspect]
     Dosage: 400 MG, PER DAY

REACTIONS (7)
  - Pityriasis rosea [Recovering/Resolving]
  - Rash erythematous [Recovering/Resolving]
  - Parakeratosis [Recovering/Resolving]
  - Acanthosis [Recovering/Resolving]
  - Epidermal necrosis [Recovering/Resolving]
  - Face oedema [Recovering/Resolving]
  - Oedema peripheral [Recovering/Resolving]
